FAERS Safety Report 4434818-6 (Version None)
Quarter: 2004Q3

REPORT INFORMATION
  Report Type: 
  Country: None (occurrence: None)
  Receive Date: 20040726
  Receipt Date: 20040319
  Transmission Date: 20050211
  Serious: No
  Sender: FDA-Public Use
  Company Number: USA040259888

PATIENT
  Age: 76 Year
  Sex: Female

DRUGS (7)
  1. FORTEO [Suspect]
     Dates: start: 20031024, end: 20040201
  2. CALCIUM [Concomitant]
  3. OCUVITE [Concomitant]
  4. LUTEIN [Concomitant]
  5. VITAMIN C [Concomitant]
  6. ALL PURPOSE VITAMIN WITH IRON (FLINSTONES) [Concomitant]
  7. URSO [Concomitant]

REACTIONS (9)
  - BAND NEUTROPHIL COUNT INCREASED [None]
  - EOSINOPHIL COUNT INCREASED [None]
  - LYMPHOCYTE COUNT DECREASED [None]
  - MEAN CELL HAEMOGLOBIN [None]
  - MONOCYTE COUNT INCREASED [None]
  - MUSCLE SPASMS [None]
  - PLATELET COUNT DECREASED [None]
  - RED BLOOD CELL COUNT DECREASED [None]
  - WHITE BLOOD CELL COUNT DECREASED [None]
